FAERS Safety Report 4837906-5 (Version None)
Quarter: 2005Q4

REPORT INFORMATION
  Report Type: 
  Country: None (occurrence: None)
  Receive Date: 20051128
  Receipt Date: 20051025
  Transmission Date: 20060501
  Serious: Yes (Hospitalization, Other)
  Sender: FDA-Public Use
  Company Number: US-BRISTOL-MYERS SQUIBB COMPANY-13158845

PATIENT
  Age: 65 Year
  Sex: Male
  Weight: 86 kg

DRUGS (3)
  1. KENALOG [Suspect]
     Indication: DERMATITIS CONTACT
     Route: 030
     Dates: start: 20041019
  2. KENALOG [Suspect]
     Route: 030
     Dates: start: 20041019
  3. CELEBREX [Suspect]
     Indication: OSTEOARTHRITIS
     Dates: end: 20041024

REACTIONS (13)
  - ALANINE AMINOTRANSFERASE INCREASED [None]
  - ANAPHYLACTIC REACTION [None]
  - ASPARTATE AMINOTRANSFERASE INCREASED [None]
  - BACTERIAL CULTURE POSITIVE [None]
  - CELLULITIS [None]
  - HYPOTENSION [None]
  - INJECTION SITE BRUISING [None]
  - LIVER FUNCTION TEST ABNORMAL [None]
  - NECROTISING FASCIITIS [None]
  - RENAL FAILURE [None]
  - RESPIRATORY FAILURE [None]
  - SEPSIS [None]
  - URINARY TRACT INFECTION PSEUDOMONAL [None]
